FAERS Safety Report 10205211 (Version 1)
Quarter: 2014Q2

REPORT INFORMATION
  Report Type: Spontaneous
  Country: US (occurrence: None)
  Receive Date: 20140527
  Receipt Date: 20140527
  Transmission Date: 20141212
  Serious: Yes (Hospitalization)
  Sender: FDA-Public Use
  Company Number: None

PATIENT
  Age: 57 Year
  Sex: Female

DRUGS (6)
  1. AMPICILLIN/SULBACTAM [Suspect]
     Indication: CELLULITIS
     Route: 042
     Dates: start: 20120703, end: 20120706
  2. FAMOTIDINE [Concomitant]
  3. HEPARIN [Concomitant]
  4. ONDANSETRON [Concomitant]
  5. POTASSIUM CHLORIDE [Concomitant]
  6. METOPROLOL [Concomitant]

REACTIONS (4)
  - Pyrexia [None]
  - Diarrhoea [None]
  - White blood cell count increased [None]
  - Clostridium difficile infection [None]
